FAERS Safety Report 6370650-4 (Version None)
Quarter: 2009Q4

REPORT INFORMATION
  Report Type: 
  Country: None (occurrence: None)
  Receive Date: 20090918
  Receipt Date: 20090907
  Transmission Date: 20100525
  Serious: Yes (Hospitalization)
  Sender: FDA-Public Use
  Company Number: 2009AL005910

PATIENT
  Age: 57 Year
  Sex: Male

DRUGS (3)
  1. IBUPROFEN [Suspect]
     Route: 048
  2. FEVERALL [Suspect]
     Route: 054
  3. CIPROFLOXACIN [Concomitant]

REACTIONS (4)
  - ANGINA PECTORIS [None]
  - FALL [None]
  - LIGAMENT INJURY [None]
  - PULMONARY EMBOLISM [None]
